FAERS Safety Report 9258991 (Version 1)
Quarter: 2013Q2

REPORT INFORMATION
  Report Type: Spontaneous
  Country: US (occurrence: US)
  Receive Date: 20130426
  Receipt Date: 20130426
  Transmission Date: 20140414
  Serious: Yes (Hospitalization)
  Sender: FDA-Public Use
  Company Number: US-BAYER-2013-051849

PATIENT
  Age: 34 Year
  Sex: Female
  Weight: 62.59 kg

DRUGS (4)
  1. YAZ [Suspect]
  2. SYMBICORT [Concomitant]
     Route: 045
  3. IBUPROFEN [Concomitant]
     Dosage: 600 MG, BID
     Route: 048
  4. MOTRIN [Concomitant]

REACTIONS (2)
  - Pulmonary embolism [None]
  - Deep vein thrombosis [Recovering/Resolving]
